FAERS Safety Report 13400665 (Version 6)
Quarter: 2017Q4

REPORT INFORMATION
  Report Type: Report from Study
  Country: US (occurrence: BR)
  Receive Date: 20170404
  Receipt Date: 20171019
  Transmission Date: 20180320
  Serious: Yes (Life-Threatening, Hospitalization, Other)
  Sender: FDA-Public Use
  Company Number: US-SUNOVION-2017SUN001396

PATIENT
  Sex: Female
  Weight: 78 kg

DRUGS (5)
  1. INDACATEROL AND GLYCOPYRROLATE [Suspect]
     Active Substance: GLYCOPYRROLATE\INDACATEROL MALEATE
     Indication: BRONCHITIS CHRONIC
  2. INDACATEROL AND GLYCOPYRROLATE [Suspect]
     Active Substance: GLYCOPYRROLATE\INDACATEROL MALEATE
     Indication: DYSPNOEA
     Dosage: 1 DF (GLYCOPYRRONIUM 50 UG AND INDACATEROL 110 UG), QD
     Route: 055
     Dates: start: 20170223
  3. INDACATEROL AND GLYCOPYRROLATE [Suspect]
     Active Substance: GLYCOPYRROLATE\INDACATEROL MALEATE
     Indication: EMPHYSEMA
     Dosage: 1 DF (GLYCOPYRRONIUM 50 UG AND INDACATEROL 110 UG), QD
     Route: 055
  4. ALENIA [Concomitant]
     Active Substance: BUDESONIDE\FORMOTEROL FUMARATE
     Dosage: UNK
  5. PURAN [Concomitant]
     Active Substance: LEVOTHYROXINE SODIUM

REACTIONS (20)
  - Gait inability [Unknown]
  - Nervous system disorder [Unknown]
  - Memory impairment [Unknown]
  - Cough [Recovered/Resolved]
  - Wrong technique in product usage process [Unknown]
  - Emotional disorder [Unknown]
  - Feeling abnormal [Unknown]
  - Heart rate increased [Unknown]
  - Cardiac disorder [Recovering/Resolving]
  - Product use issue [Unknown]
  - Dyspnoea [Recovering/Resolving]
  - Bone disorder [Unknown]
  - Depression [Unknown]
  - Nervousness [Unknown]
  - Dysstasia [Unknown]
  - Tachycardia [Recovering/Resolving]
  - Asthenia [Recovering/Resolving]
  - Cardiomegaly [Unknown]
  - Weight decreased [Unknown]
  - Malaise [Unknown]
